FAERS Safety Report 4487815-9 (Version None)
Quarter: 2004Q4

REPORT INFORMATION
  Report Type: 
  Country: None (occurrence: None)
  Receive Date: 20041025
  Receipt Date: 20041013
  Transmission Date: 20050328
  Serious: Yes (Hospitalization)
  Sender: FDA-Public Use
  Company Number: 8006901

PATIENT
  Sex: Female

DRUGS (8)
  1. KEPPRA [Suspect]
     Indication: CONVULSION
     Dosage: 750 MG 2/D; PO
     Route: 048
     Dates: start: 20040614, end: 20040617
  2. KEPPRA [Suspect]
     Indication: CONVULSION
     Dosage: 250 MG/D; PO
     Route: 048
     Dates: start: 20040601, end: 20040727
  3. LEXAPRO [Concomitant]
  4. HYDROCHLOROTHIAZIDE [Concomitant]
  5. EFFEXOR [Concomitant]
  6. TEGRETOL [Concomitant]
  7. LAMICTAL [Concomitant]
  8. LAMICTAL [Concomitant]

REACTIONS (5)
  - BALANCE DISORDER [None]
  - CONVERSION DISORDER [None]
  - FALL [None]
  - GAIT DISTURBANCE [None]
  - HYPONATRAEMIA [None]
